FAERS Safety Report 8246049-2 (Version None)
Quarter: 2012Q1

REPORT INFORMATION
  Report Type: 
  Country: None (occurrence: None)
  Receive Date: 20120328
  Receipt Date: 20120328
  Transmission Date: 20120608
  Serious: Yes (Other)
  Sender: FDA-Public Use
  Company Number: None

PATIENT
  Age: 95 Year
  Sex: Female

DRUGS (1)
  1. DONEPEZIL HCL [Suspect]
     Dosage: 10 MG QD PO
     Route: 048
     Dates: start: 20120216, end: 20120217

REACTIONS (1)
  - DIARRHOEA [None]
